FAERS Safety Report 13084726 (Version 1)
Quarter: 2017Q1

REPORT INFORMATION
  Report Type: Spontaneous
  Country: BE (occurrence: BE)
  Receive Date: 20170104
  Receipt Date: 20170104
  Transmission Date: 20170428
  Serious: Yes (Other)
  Sender: FDA-Public Use
  Company Number: BE-009507513-1611BEL007438

PATIENT
  Age: 21 Year
  Sex: Female

DRUGS (3)
  1. NUVARING [Suspect]
     Active Substance: ETHINYL ESTRADIOL\ETONOGESTREL
     Dosage: THE LAST RING, UNK
     Route: 067
     Dates: start: 20160930, end: 20161005
  2. NUVARING [Suspect]
     Active Substance: ETHINYL ESTRADIOL\ETONOGESTREL
     Dosage: THE RING BEFORE THE LAST RING, UNK
     Route: 067
     Dates: start: 20160902, end: 20160923
  3. NUVARING [Suspect]
     Active Substance: ETHINYL ESTRADIOL\ETONOGESTREL
     Dosage: 1 RING, UNK
     Route: 067
     Dates: start: 201405

REACTIONS (7)
  - Unintended pregnancy [Recovered/Resolved]
  - Incorrect drug administration duration [Unknown]
  - Inappropriate schedule of drug administration [Unknown]
  - Device expulsion [Unknown]
  - Intentional medical device removal by patient [Unknown]
  - Abortion induced [Unknown]
  - Pregnancy with contraceptive device [Recovered/Resolved]

NARRATIVE: CASE EVENT DATE: 2016
